FAERS Safety Report 6540536-0 (Version None)
Quarter: 2010Q1

REPORT INFORMATION
  Report Type: 
  Country: None (occurrence: None)
  Receive Date: 20100118
  Receipt Date: 20100106
  Transmission Date: 20100710
  Serious: Yes (Other)
  Sender: FDA-Public Use
  Company Number: GB-RANBAXY-2010RR-30326

PATIENT
  Age: 62 Year
  Sex: Female

DRUGS (1)
  1. IBUPROFEN [Suspect]
     Indication: NECK INJURY
     Dosage: 400 MG, TID
     Route: 048
     Dates: start: 19950101, end: 19950101

REACTIONS (1)
  - KERATOPATHY [None]
